FAERS Safety Report 24562941 (Version 1)
Quarter: 2024Q4

REPORT INFORMATION
  Report Type: Other
  Country: LK (occurrence: LK)
  Receive Date: 20241030
  Receipt Date: 20241030
  Transmission Date: 20250115
  Serious: Yes (Hospitalization, Other)
  Sender: ANI
  Company Number: LK-ANIPHARMA-012693

PATIENT
  Age: 34 Year
  Sex: Male

DRUGS (5)
  1. SULFAMETHOXAZOLE AND TRIMETHOPRIM [Suspect]
     Active Substance: SULFAMETHOXAZOLE\TRIMETHOPRIM
     Indication: Burkholderia pseudomallei infection
     Route: 048
  2. CEFTRIAXONE [Concomitant]
     Active Substance: CEFTRIAXONE
     Indication: Product used for unknown indication
  3. CEFTAZIDIME [Concomitant]
     Active Substance: CEFTAZIDIME
     Indication: Burkholderia pseudomallei infection
  4. MEROPENEM [Concomitant]
     Active Substance: MEROPENEM
     Indication: Burkholderia pseudomallei infection
  5. FOLIC ACID [Concomitant]
     Active Substance: FOLIC ACID
     Indication: Burkholderia pseudomallei infection

REACTIONS (1)
  - Neutropenic sepsis [Unknown]
